FAERS Safety Report 9153541 (Version 1)
Quarter: 2013Q1

REPORT INFORMATION
  Report Type: Spontaneous
  Country: US (occurrence: None)
  Receive Date: 20130306
  Receipt Date: 20130306
  Transmission Date: 20140127
  Serious: Yes (Hospitalization)
  Sender: FDA-Public Use
  Company Number: None

PATIENT
  Sex: Female
  Weight: 19.2 kg

DRUGS (16)
  1. ONCASPAR [Suspect]
     Dosage: 1900 IU
  2. VINCRISTINE SULFATE [Suspect]
  3. DEXAMETHASONE [Suspect]
  4. CYTARABINE [Suspect]
  5. METHOTREXATE [Suspect]
  6. CHLOEHEXIDINE GLUCONATE [Concomitant]
  7. DEXMEDETOMIDINE [Concomitant]
  8. FENTANYL [Concomitant]
  9. HYDROCORTISONE [Concomitant]
  10. HYDROMORPHONE (DILAUDID) [Concomitant]
  11. LORAZEPAM [Concomitant]
  12. METHADONE [Concomitant]
  13. MIDAZULAIN (VERSED) [Concomitant]
  14. MORPHINE [Concomitant]
  15. PROPUFOL [Concomitant]
  16. VECURONIUN [Concomitant]

REACTIONS (7)
  - Abdominal pain [None]
  - Vomiting [None]
  - Hypophagia [None]
  - Hypotension [None]
  - Septic shock [None]
  - Caecitis [None]
  - Colitis [None]
